FAERS Safety Report 6660159-2 (Version None)
Quarter: 2010Q1

REPORT INFORMATION
  Report Type: 
  Country: None (occurrence: None)
  Receive Date: 20100331
  Receipt Date: 20100225
  Transmission Date: 20100710
  Serious: No
  Sender: FDA-Public Use
  Company Number: 2009BI018679

PATIENT
  Age: 53 Year
  Sex: Female

DRUGS (2)
  1. TYSABRI [Suspect]
     Indication: MULTIPLE SCLEROSIS
     Route: 042
     Dates: start: 20090603
  2. BENADRYL [Concomitant]
     Indication: PROPHYLAXIS

REACTIONS (9)
  - ARTHRALGIA [None]
  - CONTUSION [None]
  - CYSTITIS [None]
  - FALL [None]
  - FATIGUE [None]
  - FINGER DEFORMITY [None]
  - LOCAL SWELLING [None]
  - MEMORY IMPAIRMENT [None]
  - OEDEMA PERIPHERAL [None]
